FAERS Safety Report 20128741 (Version 1)
Quarter: 2021Q4

REPORT INFORMATION
  Report Type: Other
  Country: US (occurrence: None)
  Receive Date: 20211130
  Receipt Date: 20211130
  Transmission Date: 20220303
  Serious: Yes (Other)
  Sender: FDA-Public Use
  Company Number: US-ROCHE-2961706

PATIENT
  Age: 68 Year
  Sex: Female

DRUGS (9)
  1. OCREVUS [Suspect]
     Active Substance: OCRELIZUMAB
     Indication: Multiple sclerosis
     Dosage: YES
     Route: 065
     Dates: start: 20200430
  2. METFORMIN [Concomitant]
     Active Substance: METFORMIN HYDROCHLORIDE
  3. CARVEDILOL [Concomitant]
     Active Substance: CARVEDILOL
  4. LASIX [Concomitant]
     Active Substance: FUROSEMIDE
  5. METHOTREXATE SODIUM [Concomitant]
     Active Substance: METHOTREXATE SODIUM
  6. ASPIRIN [Concomitant]
     Active Substance: ASPIRIN
  7. SIMVASTATIN [Concomitant]
     Active Substance: SIMVASTATIN
  8. BACLOFEN [Concomitant]
     Active Substance: BACLOFEN
  9. TEMAZEPAM [Concomitant]
     Active Substance: TEMAZEPAM

REACTIONS (1)
  - Staphylococcal infection [Recovered/Resolved]

NARRATIVE: CASE EVENT DATE: 20211001
